FAERS Safety Report 7167969-6 (Version None)
Quarter: 2010Q4

REPORT INFORMATION
  Report Type: 
  Country: None (occurrence: None)
  Receive Date: 20101216
  Receipt Date: 20101208
  Transmission Date: 20110411
  Serious: Yes (Other)
  Sender: FDA-Public Use
  Company Number: US-PFIZER INC-2010167390

PATIENT
  Sex: Female
  Weight: 70.3 kg

DRUGS (10)
  1. EFFEXOR XR [Suspect]
     Indication: BIPOLAR DISORDER
     Dosage: UNK
     Route: 048
     Dates: start: 20050101
  2. EFFEXOR XR [Suspect]
     Indication: DEPRESSION
  3. ABILIFY [Concomitant]
     Indication: DEPRESSION
     Dosage: UNK
  4. ABILIFY [Concomitant]
     Indication: MOOD SWINGS
  5. CLONAZEPAM [Concomitant]
     Dosage: UNK
  6. BUSPIRONE [Concomitant]
     Dosage: UNK
  7. SEROQUEL [Concomitant]
     Dosage: UNK
     Route: 048
  8. LISDEXAMFETAMINE DIMESYLATE [Concomitant]
     Indication: ATTENTION DEFICIT/HYPERACTIVITY DISORDER
     Dosage: UNK
  9. METOPROLOL [Concomitant]
     Indication: MIGRAINE
     Dosage: UNK
  10. IMITREX [Concomitant]
     Indication: MIGRAINE
     Dosage: UNK
     Route: 058

REACTIONS (1)
  - CONVULSION [None]
